FAERS Safety Report 4362689-5 (Version None)
Quarter: 2004Q2

REPORT INFORMATION
  Report Type: 
  Country: None (occurrence: None)
  Receive Date: 20040517
  Receipt Date: 20040322
  Transmission Date: 20050107
  Serious: No
  Sender: FDA-Public Use
  Company Number: S04-USA-01991-01

PATIENT
  Age: 82 Year
  Sex: Female

DRUGS (11)
  1. NAMENDA [Suspect]
     Indication: DEMENTIA ALZHEIMER'S TYPE
     Dosage: 5 MG BID PO
     Route: 048
     Dates: start: 20040319
  2. NAMENDA [Suspect]
     Indication: DEMENTIA ALZHEIMER'S TYPE
     Dosage: 5 MG QD PO
     Route: 048
     Dates: start: 20040312, end: 20040318
  3. ARICEPT [Concomitant]
  4. ZYPREXA [Concomitant]
  5. ATENOLOL [Concomitant]
  6. DIGOXIN [Concomitant]
  7. ISOSORBIDE [Concomitant]
  8. MAXZIDE [Concomitant]
  9. COUMADIN [Concomitant]
  10. LAMOTIL [Concomitant]
  11. PEPCID [Concomitant]

REACTIONS (4)
  - CONFUSIONAL STATE [None]
  - FALL [None]
  - HYPERSOMNIA [None]
  - SKIN INJURY [None]
